FAERS Safety Report 5104013-6 (Version None)
Quarter: 2006Q3

REPORT INFORMATION
  Report Type: 
  Country: None (occurrence: None)
  Receive Date: 20060908
  Receipt Date: 20060830
  Transmission Date: 20061208
  Serious: Yes (Other)
  Sender: FDA-Public Use
  Company Number: 2006105736

PATIENT
  Age: 66 Year
  Sex: Male

DRUGS (1)
  1. GLUCOTROL XL [Suspect]
     Indication: DIABETES MELLITUS
     Dosage: 5 MG
     Dates: start: 20020401

REACTIONS (1)
  - REMOVAL OF FOREIGN BODY FROM GASTROINTESTINAL TRACT [None]
